FAERS Safety Report 12485027 (Version 1)
Quarter: 2016Q2

REPORT INFORMATION
  Report Type: Spontaneous
  Country: GB (occurrence: GB)
  Receive Date: 20160621
  Receipt Date: 20160621
  Transmission Date: 20160815
  Serious: Yes (Other)
  Sender: FDA-Public Use
  Company Number: GB-GLAXOSMITHKLINE-B0376806A

PATIENT
  Age: 22 Year
  Sex: Male

DRUGS (3)
  1. SEROXAT [Suspect]
     Active Substance: PAROXETINE HYDROCHLORIDE
     Indication: DEPRESSION
     Dosage: UNK
     Dates: start: 19981020
  2. LEXAPRO [Concomitant]
     Active Substance: ESCITALOPRAM OXALATE
     Indication: PRODUCT USED FOR UNKNOWN INDICATION
     Dosage: 20 MG, UNK
     Dates: start: 2003
  3. ZISPIN [Concomitant]
     Active Substance: MIRTAZAPINE
     Indication: PRODUCT USED FOR UNKNOWN INDICATION
     Dosage: 30 MG, UNK
     Dates: start: 200312

REACTIONS (20)
  - Paraesthesia [Unknown]
  - Vertigo [Unknown]
  - Aggression [Unknown]
  - Hyperhidrosis [Unknown]
  - Tremor [Unknown]
  - Panic attack [Unknown]
  - Anxiety [Unknown]
  - Diarrhoea [Unknown]
  - Lethargy [Unknown]
  - Drug withdrawal syndrome [Unknown]
  - Nausea [Unknown]
  - Fatigue [Unknown]
  - Muscle spasms [Unknown]
  - Vomiting [Unknown]
  - Confusional state [Unknown]
  - Headache [Unknown]
  - Agitation [Unknown]
  - Dizziness [Unknown]
  - Influenza [Unknown]
  - Nightmare [Unknown]

NARRATIVE: CASE EVENT DATE: 199910
